FAERS Safety Report 5641952-1 (Version None)
Quarter: 2008Q1

REPORT INFORMATION
  Report Type: 
  Country: None (occurrence: None)
  Receive Date: 20080131
  Receipt Date: 20071018
  Transmission Date: 20080703
  Serious: No
  Sender: FDA-Public Use
  Company Number: 163-21880-07101003

PATIENT
  Sex: Female

DRUGS (5)
  1. REVLIMID [Suspect]
     Indication: MULTIPLE MYELOMA
     Dosage: 10 MG QD X 28 DAYS, ORAL
     Route: 048
     Dates: start: 20061101
  2. LABETALOL HCL [Concomitant]
  3. VERAPAMIL [Concomitant]
  4. DIOVAN [Concomitant]
  5. CLONIDINE [Concomitant]

REACTIONS (1)
  - SKIN DISCOLOURATION [None]
